FAERS Safety Report 16663493 (Version 1)
Quarter: 2019Q3

REPORT INFORMATION
  Report Type: Report from Study
  Country: US (occurrence: US)
  Receive Date: 20190802
  Receipt Date: 20190802
  Transmission Date: 20191004
  Serious: No
  Sender: FDA-Public Use
  Company Number: US-EXELIXIS-CABO-19019888

PATIENT
  Sex: Male

DRUGS (1)
  1. CABOMETYX [Suspect]
     Active Substance: CABOZANTINIB S-MALATE
     Indication: RENAL CANCER
     Dosage: 60 MG, QD
     Route: 048
     Dates: start: 20190314

REACTIONS (9)
  - Toothache [Unknown]
  - Diarrhoea [Unknown]
  - Erythema [Unknown]
  - Upper respiratory tract infection [Unknown]
  - Blister [Unknown]
  - Pain in extremity [Unknown]
  - Malaise [Unknown]
  - Decreased appetite [Unknown]
  - Blood pressure increased [Unknown]
